FAERS Safety Report 10729970 (Version 7)
Quarter: 2016Q1

REPORT INFORMATION
  Report Type: Report from Study
  Country: US (occurrence: US)
  Receive Date: 20150122
  Receipt Date: 20160317
  Transmission Date: 20160525
  Serious: Yes (Hospitalization, Other)
  Sender: FDA-Public Use
  Company Number: US-ACTELION-A-NJ2014-110574

PATIENT
  Age: 69 Year
  Sex: Female

DRUGS (4)
  1. VENTAVIS [Suspect]
     Active Substance: ILOPROST
     Dosage: 5 MCG, 6-9X/DAY
     Route: 055
  2. ADCIRCA [Concomitant]
     Active Substance: TADALAFIL
  3. MACITENTAN [Suspect]
     Active Substance: MACITENTAN
     Indication: PULMONARY HYPERTENSION
     Dosage: 10 MG, QD
     Route: 048
     Dates: start: 20131217
  4. VENTAVIS [Suspect]
     Active Substance: ILOPROST
     Indication: PULMONARY HYPERTENSION
     Dosage: 5 MCG, 4-9X/DAY
     Route: 055
     Dates: start: 20090625

REACTIONS (10)
  - Drug dose omission [Unknown]
  - Insomnia [Unknown]
  - Oedema [Unknown]
  - Myopathy [Recovering/Resolving]
  - Cardiac failure congestive [Unknown]
  - Dyspnoea [Unknown]
  - Extrasystoles [Unknown]
  - Oedema peripheral [Unknown]
  - Fluid retention [Unknown]
  - Hypokinesia [Unknown]

NARRATIVE: CASE EVENT DATE: 20141108
